FAERS Safety Report 7460428-2 (Version None)
Quarter: 2011Q2

REPORT INFORMATION
  Report Type: 
  Country: None (occurrence: None)
  Receive Date: 20110505
  Receipt Date: 20110427
  Transmission Date: 20111010
  Serious: Yes (Other)
  Sender: FDA-Public Use
  Company Number: B0716101A

PATIENT
  Sex: Male
  Weight: 59 kg

DRUGS (17)
  1. URSO 250 [Concomitant]
     Dosage: 600MG PER DAY
     Route: 048
     Dates: end: 20101111
  2. BENZETHONIUM CHLORIDE [Concomitant]
     Route: 002
     Dates: start: 20101004, end: 20101019
  3. SOLDEM 3A [Concomitant]
     Dosage: 1000ML PER DAY
     Route: 042
     Dates: end: 20101005
  4. CYCLOSPORINE [Concomitant]
     Indication: IMMUNOSUPPRESSION
     Dosage: 280MG PER DAY
     Route: 065
     Dates: start: 20101005
  5. HEPARIN LOCK-FLUSH [Concomitant]
     Route: 042
     Dates: end: 20101209
  6. ALKERAN [Suspect]
     Indication: STEM CELL TRANSPLANT
     Dosage: 130MG PER DAY
     Route: 042
     Dates: start: 20101004, end: 20101005
  7. FLUDARA [Concomitant]
     Indication: STEM CELL TRANSPLANT
     Dosage: 50MG PER DAY
     Route: 042
     Dates: start: 20100930, end: 20101003
  8. METHOTREXATE [Concomitant]
     Indication: IMMUNOSUPPRESSION
     Dosage: 17MG PER DAY
     Route: 065
     Dates: start: 20101007, end: 20101012
  9. CRAVIT [Concomitant]
     Dosage: 300MG PER DAY
     Route: 048
     Dates: end: 20101011
  10. BACTRIM [Concomitant]
     Dosage: 1IUAX PER DAY
     Route: 048
     Dates: end: 20101224
  11. FLUCONAZOLE [Concomitant]
     Dosage: 200MG PER DAY
     Route: 048
     Dates: end: 20101224
  12. PRIMPERAN TAB [Concomitant]
     Dosage: 10MG PER DAY
     Dates: start: 20101004, end: 20101010
  13. MAGLAX [Concomitant]
     Dosage: 1500MG PER DAY
     Route: 048
     Dates: end: 20101006
  14. GRANISETRON HCL [Concomitant]
     Dosage: 3MG PER DAY
     Route: 042
     Dates: start: 20101004, end: 20101004
  15. ZOVIRAX [Concomitant]
     Dosage: 1000MG PER DAY
     Route: 048
     Dates: end: 20101220
  16. PARIET [Concomitant]
     Dosage: 10MG PER DAY
     Route: 048
     Dates: end: 20101224
  17. MEYLON [Concomitant]
     Dosage: 40ML PER DAY
     Route: 042
     Dates: end: 20101005

REACTIONS (1)
  - SEPSIS [None]
